FAERS Safety Report 16970040 (Version 2)
Quarter: 2020Q1

REPORT INFORMATION
  Report Type: Other
  Country: ES (occurrence: ES)
  Receive Date: 20191029
  Receipt Date: 20200115
  Transmission Date: 20200409
  Serious: Yes (Other)
  Sender: FDA-Public Use
  Company Number: DE-DEXPHARM-20190907

PATIENT
  Age: 29 Year
  Sex: Female

DRUGS (6)
  1. DEXAFREE [Suspect]
     Active Substance: DEXAMETHASONE SODIUM PHOSPHATE
     Dosage: EVERY 6 HOURS
     Route: 047
  2. BROLENE 0.1% [Suspect]
     Active Substance: PROPAMIDINE ISETHIONATE
     Indication: ACANTHAMOEBA KERATITIS
     Dosage: HOURLY
     Route: 047
  3. COLIRCUSI GENTADEXA [Suspect]
     Active Substance: DEXAMETHASONE SODIUM PHOSPHATE\GENTAMICIN SULFATE\TETRAHYDROZOLINE HYDROCHLORIDE
     Route: 047
  4. AZYDROP [Suspect]
     Active Substance: AZITHROMYCIN DIHYDRATE
     Dosage: SINGLE DOSE EVERY 12 HOURS
     Route: 047
  5. CHLORHEXIDINE 0.02% DROPS [Suspect]
     Active Substance: CHLORHEXIDINE
     Indication: ACANTHAMOEBA KERATITIS
     Dosage: EVERY 2 HOURS
     Route: 047
  6. AZYDROP [Suspect]
     Active Substance: AZITHROMYCIN DIHYDRATE
     Indication: ACANTHAMOEBA KERATITIS
     Dosage: SINGLE DOSE EVERY 4 HOURS
     Route: 047

REACTIONS (1)
  - Ulcerative keratitis [Recovered/Resolved]
